FAERS Safety Report 6699868-8 (Version None)
Quarter: 2010Q2

REPORT INFORMATION
  Report Type: 
  Country: None (occurrence: None)
  Receive Date: 20100428
  Receipt Date: 20100415
  Transmission Date: 20101027
  Serious: Yes (Hospitalization)
  Sender: FDA-Public Use
  Company Number: US-RANBAXY-2010US-33246

PATIENT

DRUGS (1)
  1. ISOPTIN SR [Suspect]
     Indication: HYPERTROPHIC CARDIOMYOPATHY
     Dosage: 120 MG, UNK
     Route: 065

REACTIONS (2)
  - CIRCULATORY COLLAPSE [None]
  - OFF LABEL USE [None]
